FAERS Safety Report 20901407 (Version 1)
Quarter: 2022Q2

REPORT INFORMATION
  Report Type: Spontaneous
  Country: US (occurrence: None)
  Receive Date: 20220601
  Receipt Date: 20220601
  Transmission Date: 20220721
  Serious: Yes (Hospitalization)
  Sender: FDA-Public Use
  Company Number: None

PATIENT
  Sex: Female

DRUGS (15)
  1. LORBRENA [Suspect]
     Active Substance: LORLATINIB
     Indication: Lung neoplasm malignant
     Dosage: OTHER FREQUENCY :  30D SWALLOW WHOLE;?
     Route: 048
     Dates: start: 20210520
  2. LORBRENA [Suspect]
     Active Substance: LORLATINIB
     Dosage: OTHER FREQUENCY : 30 D SWALLOW WHOLE;?
     Route: 048
  3. AMIODARONE [Concomitant]
     Active Substance: AMIODARONE
  4. ASPIRIN [Concomitant]
     Active Substance: ASPIRIN
  5. ATENOLOL [Concomitant]
     Active Substance: ATENOLOL
  6. CALCIUM CARBONATE [Concomitant]
     Active Substance: CALCIUM CARBONATE
  7. CHOLECALCIF POW [Concomitant]
  8. DOXYCYCLINE HYCLATE [Concomitant]
     Active Substance: DOXYCYCLINE HYCLATE
  9. ELIQUIS [Concomitant]
     Active Substance: APIXABAN
  10. FUROSEMIDE [Concomitant]
     Active Substance: FUROSEMIDE
  11. HYDROCHLOROTHIAZIDE [Concomitant]
     Active Substance: HYDROCHLOROTHIAZIDE
  12. HYDROMORPHONE [Concomitant]
     Active Substance: HYDROMORPHONE
  13. MARINOL [Concomitant]
     Active Substance: DRONABINOL
  14. OMEGA-3 ACIDS [Concomitant]
     Active Substance: OMEGA-3 FATTY ACIDS
  15. POTASSIUM [Concomitant]

REACTIONS (5)
  - Ageusia [None]
  - Peripheral swelling [None]
  - Dry skin [None]
  - Therapy interrupted [None]
  - Knee operation [None]
